FAERS Safety Report 5995624-4 (Version None)
Quarter: 2008Q4

REPORT INFORMATION
  Report Type: 
  Country: None (occurrence: None)
  Receive Date: 20081212
  Receipt Date: 20081002
  Transmission Date: 20090506
  Serious: No
  Sender: FDA-Public Use
  Company Number: US-ABBOTT-08P-163-0479486-00

PATIENT
  Sex: Female
  Weight: 91.254 kg

DRUGS (3)
  1. HUMIRA [Suspect]
     Indication: RHEUMATOID ARTHRITIS
     Route: 058
     Dates: end: 20080701
  2. HUMIRA [Suspect]
     Route: 058
     Dates: start: 20081002
  3. UNKNOWN CREAMS [Concomitant]
     Indication: PSORIATIC ARTHROPATHY
     Route: 061

REACTIONS (2)
  - BONE SWELLING [None]
  - RENAL FUNCTION TEST ABNORMAL [None]
